FAERS Safety Report 10235525 (Version 1)
Quarter: 2014Q2

REPORT INFORMATION
  Report Type: Spontaneous
  Country: IN (occurrence: IN)
  Receive Date: 20140613
  Receipt Date: 20140613
  Transmission Date: 20141212
  Serious: Yes (Other)
  Sender: FDA-Public Use
  Company Number: IN-SUN PHARMACEUTICAL INDUSTRIES LTD-2014SUN01262

PATIENT
  Age: 56 Year
  Sex: Female

DRUGS (4)
  1. OLANZAPINE 10 MG TABLETS [Suspect]
     Indication: DELUSIONAL DISORDER, UNSPECIFIED TYPE
     Dosage: 10 MG, A DAY
     Route: 065
  2. FLUPENTHIXOL DECANOATE [Suspect]
     Indication: DELUSIONAL DISORDER, UNSPECIFIED TYPE
     Dosage: 40 MG, ONCE FORTNIGHTLY
     Route: 030
  3. CLONAZEPAM [Suspect]
     Indication: DELUSIONAL DISORDER, UNSPECIFIED TYPE
     Dosage: 0.5 MG, A DAY
     Route: 065
  4. CLONAZEPAM [Suspect]
     Dosage: 1 MG, AT NIGHT FOR A WEEK
     Route: 048

REACTIONS (1)
  - Restless legs syndrome [Recovering/Resolving]
